FAERS Safety Report 23697462 (Version 2)
Quarter: 2024Q2

REPORT INFORMATION
  Report Type: Report from Study
  Country: FR (occurrence: FR)
  Receive Date: 20240402
  Receipt Date: 20240403
  Transmission Date: 20240716
  Serious: Yes (Other)
  Sender: FDA-Public Use
  Company Number: FR-JNJFOC-20240370180

PATIENT

DRUGS (2)
  1. REMICADE [Suspect]
     Active Substance: INFLIXIMAB
     Indication: Sarcoidosis
     Dosage: ON AVERAGE EVERY 4 TO 6 WEEKS (MEDIAN, 5 WEEKS)
     Route: 042
  2. METHOTREXATE [Suspect]
     Active Substance: METHOTREXATE
     Indication: Sarcoidosis
     Route: 065

REACTIONS (7)
  - Hepatic cytolysis [Unknown]
  - Thyroid cancer [Unknown]
  - Dyspepsia [Unknown]
  - Alloimmunisation [Unknown]
  - Infection [Unknown]
  - Infusion related reaction [Unknown]
  - Off label use [Unknown]
